FAERS Safety Report 7687434-7 (Version None)
Quarter: 2011Q3

REPORT INFORMATION
  Report Type: 
  Country: None (occurrence: None)
  Receive Date: 20110816
  Receipt Date: 20110808
  Transmission Date: 20111222
  Serious: Yes (Hospitalization)
  Sender: FDA-Public Use
  Company Number: PHHY2011MX72316

PATIENT
  Sex: Male

DRUGS (4)
  1. SPIRIVA [Concomitant]
  2. THEOPHYLLINE [Concomitant]
  3. ONBREZ [Suspect]
     Indication: CHRONIC OBSTRUCTIVE PULMONARY DISEASE
     Dosage: 300 UG, QD
     Dates: start: 20100801
  4. COMBIVENT [Concomitant]

REACTIONS (1)
  - LUNG INFECTION [None]
